FAERS Safety Report 15523862 (Version 1)
Quarter: 2018Q4

REPORT INFORMATION
  Report Type: Spontaneous
  Country: FR (occurrence: FR)
  Receive Date: 20181018
  Receipt Date: 20181018
  Transmission Date: 20190205
  Serious: Yes (Hospitalization)
  Sender: FDA-Public Use
  Company Number: FR-TEVA-2018-FR-965575

PATIENT
  Age: 52 Year
  Sex: Male
  Weight: 74 kg

DRUGS (2)
  1. TRAMADOL BASE [Suspect]
     Active Substance: TRAMADOL
     Indication: SCIATICA
     Route: 048
     Dates: start: 20161025, end: 20170101
  2. TEGRETOL [Suspect]
     Active Substance: CARBAMAZEPINE
     Indication: SCIATICA
     Route: 048
     Dates: start: 20161025, end: 20170101

REACTIONS (1)
  - Drug reaction with eosinophilia and systemic symptoms [Recovering/Resolving]

NARRATIVE: CASE EVENT DATE: 20161220
